FAERS Safety Report 7436108-6 (Version None)
Quarter: 2011Q2

REPORT INFORMATION
  Report Type: 
  Country: None (occurrence: None)
  Receive Date: 20110425
  Receipt Date: 20110414
  Transmission Date: 20111010
  Serious: Yes (Hospitalization)
  Sender: FDA-Public Use
  Company Number: NL-MEDIMMUNE-MEDI-0013117

PATIENT
  Sex: Male
  Weight: 5.08 kg

DRUGS (2)
  1. SEVERAL UNSPECIFIED MEDICATION [Concomitant]
  2. SYNAGIS [Suspect]
     Route: 030
     Dates: start: 20110218, end: 20110318

REACTIONS (7)
  - FEEDING DISORDER NEONATAL [None]
  - HYPOPHAGIA [None]
  - CONSTIPATION [None]
  - ANURIA [None]
  - FLUID INTAKE REDUCED [None]
  - GASTROOESOPHAGEAL REFLUX DISEASE [None]
  - FEEDING DISORDER [None]
